FAERS Safety Report 9749992 (Version 1)
Quarter: 2013Q4

REPORT INFORMATION
  Report Type: Spontaneous
  Country: VE (occurrence: VE)
  Receive Date: 20131212
  Receipt Date: 20131212
  Transmission Date: 20140711
  Serious: Yes (Hospitalization, Other)
  Sender: FDA-Public Use
  Company Number: VE-PFIZER INC-2013353935

PATIENT
  Age: 31 Year
  Sex: Female

DRUGS (2)
  1. LYRICA [Suspect]
     Dosage: 150 MG, 2X/DAY
     Dates: end: 20131122
  2. NEURONTIN [Concomitant]
     Dosage: 600 MG, 2X/DAY

REACTIONS (3)
  - Hernia [Unknown]
  - Neuralgia [Unknown]
  - Back pain [Unknown]
